FAERS Safety Report 19923470 (Version 2)
Quarter: 2021Q4

REPORT INFORMATION
  Report Type: Report from Study
  Country: US (occurrence: US)
  Receive Date: 20211005
  Receipt Date: 20211225
  Transmission Date: 20220303
  Serious: No
  Sender: FDA-Public Use
  Company Number: US-NOVARTISTESTPH-NVSC2021US226532

PATIENT

DRUGS (1)
  1. COSENTYX [Suspect]
     Active Substance: SECUKINUMAB
     Indication: Psoriasis
     Route: 065

REACTIONS (5)
  - Condition aggravated [Unknown]
  - Nasal dryness [Unknown]
  - Tinea blanca [Recovering/Resolving]
  - Perichondritis [Recovering/Resolving]
  - Therapeutic response unexpected [Unknown]
